FAERS Safety Report 9366960 (Version 1)
Quarter: 2013Q2

REPORT INFORMATION
  Report Type: Spontaneous
  Country: US (occurrence: US)
  Receive Date: 20130625
  Receipt Date: 20130625
  Transmission Date: 20140414
  Serious: No
  Sender: FDA-Public Use
  Company Number: US-TEVA-413901USA

PATIENT
  Sex: 0

DRUGS (1)
  1. KETOCONAZOLE [Suspect]
     Indication: ONYCHOMYCOSIS
     Dosage: .1429 DOSAGE FORMS DAILY;

REACTIONS (1)
  - Drug intolerance [Unknown]
